FAERS Safety Report 8929649 (Version 2)
Quarter: 2012Q4

REPORT INFORMATION
  Report Type: 
  Country: US (occurrence: US)
  Receive Date: 20121121
  Receipt Date: 20121212
  Transmission Date: 20130627
  Serious: Yes (Death, Hospitalization)
  Sender: FDA-Public Use
  Company Number: US-ASTELLAS-1096809

PATIENT
  Sex: Male

DRUGS (14)
  1. TARCEVA [Suspect]
     Indication: PANCREATIC CARCINOMA
     Route: 048
     Dates: start: 20100814, end: 20110127
  2. PENTASA [Concomitant]
     Route: 048
  3. HYOSCYAMINE [Concomitant]
     Dosage: as needed
     Route: 060
  4. B-COMPLEX VITAMINS [Concomitant]
     Route: 048
  5. VITAMIN C [Concomitant]
     Route: 065
  6. VITAMIN E [Concomitant]
     Route: 065
  7. FISH OIL [Concomitant]
     Route: 048
  8. OMEGA 3 [Concomitant]
     Route: 065
  9. GARLIC [Concomitant]
     Route: 048
  10. B12 COMPLEX [Concomitant]
     Route: 065
  11. LORAZEPAM [Concomitant]
     Route: 048
  12. LEVSIN [Concomitant]
  13. ROXANOL [Concomitant]
     Route: 065
  14. OXYCONTIN [Concomitant]
     Route: 065

REACTIONS (6)
  - Disease progression [Fatal]
  - Nausea [Unknown]
  - Vomiting [Unknown]
  - Diarrhoea [Unknown]
  - Dehydration [Unknown]
  - Abdominal pain [Unknown]
